FAERS Safety Report 26023578 (Version 1)
Quarter: 2025Q4

REPORT INFORMATION
  Report Type: Spontaneous
  Country: US (occurrence: US)
  Receive Date: 20251111
  Receipt Date: 20251111
  Transmission Date: 20260117
  Serious: No
  Sender: BOEHRINGER INGELHEIM
  Company Number: US-Komodo Health-a23aa00000BulFdAAJ

PATIENT
  Sex: Female

DRUGS (1)
  1. JARDIANCE [Suspect]
     Active Substance: EMPAGLIFLOZIN
     Indication: Diabetes mellitus

REACTIONS (6)
  - Glycosylated haemoglobin increased [Unknown]
  - Weight increased [Unknown]
  - Decreased appetite [Unknown]
  - Skin swelling [Unknown]
  - Body fat disorder [Unknown]
  - Depression [Unknown]

NARRATIVE: CASE EVENT DATE: 20250101
